FAERS Safety Report 17505273 (Version 1)
Quarter: 2020Q1

REPORT INFORMATION
  Report Type: Report from Study
  Country: US (occurrence: US)
  Receive Date: 20200305
  Receipt Date: 20200305
  Transmission Date: 20200409
  Serious: Yes (Hospitalization, Other)
  Sender: FDA-Public Use
  Company Number: US-BAUSCH-BL-2020-004760

PATIENT
  Sex: Male
  Weight: 77.18 kg

DRUGS (2)
  1. XIFAXAN [Suspect]
     Active Substance: RIFAXIMIN
     Indication: HEPATIC ENCEPHALOPATHY
     Dosage: AT SOME POINT, THE PATIENT RAN OUT OF XIFAXAN
     Route: 048
  2. XIFAXAN [Suspect]
     Active Substance: RIFAXIMIN
     Dosage: WHILE IN THE HOSPITAL, THE PATIENT RESTARTED XIFAXAN
     Route: 048
     Dates: start: 2020

REACTIONS (9)
  - Thyroid mass [Not Recovered/Not Resolved]
  - Hypotension [Recovered/Resolved]
  - Treatment noncompliance [Unknown]
  - Ammonia increased [Unknown]
  - Inability to afford medication [Unknown]
  - Hepatic neoplasm [Not Recovered/Not Resolved]
  - Blood calcium increased [Recovering/Resolving]
  - Therapy cessation [Unknown]
  - Insurance issue [Unknown]
